FAERS Safety Report 11675884 (Version 1)
Quarter: 2015Q4

REPORT INFORMATION
  Report Type: Spontaneous
  Country: US (occurrence: US)
  Receive Date: 20151027
  Receipt Date: 20151027
  Transmission Date: 20160304
  Serious: No
  Sender: FDA-Public Use
  Company Number: US-ELI_LILLY_AND_COMPANY-US201008006179

PATIENT
  Sex: Female

DRUGS (2)
  1. FORTEO [Suspect]
     Active Substance: TERIPARATIDE
     Indication: BONE DISORDER
     Dosage: UNK, DAILY (1/D)
     Dates: start: 201008
  2. FORTEO [Suspect]
     Active Substance: TERIPARATIDE
     Dosage: UNK, DAILY (1/D)
     Dates: end: 20100907

REACTIONS (4)
  - Abdominal pain upper [Unknown]
  - Headache [Not Recovered/Not Resolved]
  - Insomnia [Unknown]
  - Nausea [Not Recovered/Not Resolved]
